FAERS Safety Report 5762123-4 (Version None)
Quarter: 2008Q2

REPORT INFORMATION
  Report Type: 
  Country: None (occurrence: None)
  Receive Date: 20080604
  Receipt Date: 20080526
  Transmission Date: 20081010
  Serious: Yes (Other)
  Sender: FDA-Public Use
  Company Number: THYR-1000050

PATIENT
  Age: 35 Year
  Sex: Male
  Weight: 84 kg

DRUGS (1)
  1. THYROGEN [Suspect]
     Indication: DIAGNOSTIC PROCEDURE
     Dosage: 0.9 MG, ONCE, INTRAMUSCULAR
     Route: 030
     Dates: start: 20080526, end: 20080526

REACTIONS (7)
  - BLOOD THYROID STIMULATING HORMONE INCREASED [None]
  - HEART RATE DECREASED [None]
  - HYPOTENSION [None]
  - LOSS OF CONSCIOUSNESS [None]
  - PALLOR [None]
  - PARAESTHESIA [None]
  - THYROGLOBULIN DECREASED [None]
